FAERS Safety Report 12437624 (Version 1)
Quarter: 2016Q2

REPORT INFORMATION
  Report Type: Spontaneous
  Country: US (occurrence: None)
  Receive Date: 20160603
  Receipt Date: 20160603
  Transmission Date: 20160815
  Serious: No
  Sender: FDA-Public Use
  Company Number: None

PATIENT
  Age: 60 Year
  Sex: Female

DRUGS (1)
  1. COPAXONE [Suspect]
     Active Substance: GLATIRAMER ACETATE

REACTIONS (8)
  - Pain in extremity [None]
  - Neck pain [None]
  - Abdominal distension [None]
  - Erythema [None]
  - Abdominal pain [None]
  - Scab [None]
  - Abdominal discomfort [None]
  - Back pain [None]

NARRATIVE: CASE EVENT DATE: 20160509
